FAERS Safety Report 6504594-1 (Version None)
Quarter: 2009Q4

REPORT INFORMATION
  Report Type: 
  Country: None (occurrence: None)
  Receive Date: 20091217
  Receipt Date: 20091204
  Transmission Date: 20100525
  Serious: Yes (Hospitalization)
  Sender: FDA-Public Use
  Company Number: DE-ELI_LILLY_AND_COMPANY-DE200911006474

PATIENT
  Age: 86 Year
  Sex: Female

DRUGS (5)
  1. FORTEO [Suspect]
     Indication: OSTEOPOROSIS
     Dosage: UNK, UNKNOWN
     Route: 065
     Dates: start: 20091106, end: 20091118
  2. DICLOFENAC SODIUM [Concomitant]
     Dosage: 50 MG, UNK
  3. NOVAMINSULFON [Concomitant]
     Dosage: 500 MG, UNK
  4. TOLPERISONE [Concomitant]
  5. BISOPROLOL [Concomitant]

REACTIONS (7)
  - BLOOD CALCIUM DECREASED [None]
  - BLOOD ELECTROLYTES DECREASED [None]
  - DECREASED INTEREST [None]
  - DISORIENTATION [None]
  - FATIGUE [None]
  - GENERAL PHYSICAL HEALTH DETERIORATION [None]
  - INCONTINENCE [None]
